FAERS Safety Report 4565130-2 (Version None)
Quarter: 2005Q1

REPORT INFORMATION
  Report Type: 
  Country: None (occurrence: None)
  Receive Date: 20050126
  Receipt Date: 20050126
  Transmission Date: 20050727
  Serious: Yes (Other)
  Sender: FDA-Public Use
  Company Number: None

PATIENT
  Sex: Female
  Weight: 126.1 kg

DRUGS (7)
  1. MONOPRIL [Suspect]
     Indication: HYPERTENSION
     Dosage: 40 MG Q DAY
  2. GLUCOTROL [Concomitant]
  3. NORVASC [Concomitant]
  4. LASIX [Concomitant]
  5. NITRO [Concomitant]
  6. ASPIRIN [Concomitant]
  7. PREDNISONE [Concomitant]

REACTIONS (3)
  - DRUG TOLERANCE DECREASED [None]
  - HEADACHE [None]
  - NAUSEA [None]
